FAERS Safety Report 11453635 (Version 1)
Quarter: 2015Q3

REPORT INFORMATION
  Report Type: Spontaneous
  Country: US (occurrence: US)
  Receive Date: 20150831
  Receipt Date: 20150831
  Transmission Date: 20151125
  Serious: No
  Sender: FDA-Public Use
  Company Number: US-ELI_LILLY_AND_COMPANY-US200912005430

PATIENT
  Age: 52 Year
  Sex: Female

DRUGS (1)
  1. CYMBALTA [Suspect]
     Active Substance: DULOXETINE HYDROCHLORIDE
     Indication: MAJOR DEPRESSION

REACTIONS (8)
  - Anorgasmia [Unknown]
  - Drug ineffective [Unknown]
  - Loss of libido [Unknown]
  - Dry mouth [Unknown]
  - Sleep disorder [Unknown]
  - Hyperhidrosis [Unknown]
  - Sedation [Recovering/Resolving]
  - Suicidal ideation [Unknown]
